FAERS Safety Report 9052024 (Version 1)
Quarter: 2013Q1

REPORT INFORMATION
  Report Type: Spontaneous
  Country: SE (occurrence: SE)
  Receive Date: 20130207
  Receipt Date: 20130207
  Transmission Date: 20140127
  Serious: Yes (Other)
  Sender: FDA-Public Use
  Company Number: SE-JNJFOC-20130200251

PATIENT
  Age: 69 Year
  Sex: 0

DRUGS (2)
  1. SIMPONI [Suspect]
     Indication: RHEUMATOID ARTHRITIS
     Route: 058
     Dates: start: 20110823, end: 20121122
  2. PREDNISOLON [Concomitant]
     Route: 065

REACTIONS (3)
  - Iritis [Recovered/Resolved]
  - Scleritis [Recovered/Resolved]
  - Episcleritis [Unknown]
